FAERS Safety Report 17682560 (Version 1)
Quarter: 2020Q2

REPORT INFORMATION
  Report Type: Report from Study
  Country: US (occurrence: US)
  Receive Date: 20200418
  Receipt Date: 20200418
  Transmission Date: 20200714
  Serious: Yes (Other)
  Sender: FDA-Public Use
  Company Number: NVSC2020US103142

PATIENT
  Sex: Female

DRUGS (1)
  1. GLEEVEC [Suspect]
     Active Substance: IMATINIB MESYLATE
     Indication: PRODUCT USED FOR UNKNOWN INDICATION
     Dosage: UNK
     Route: 065

REACTIONS (8)
  - Coagulopathy [Unknown]
  - Weight decreased [Unknown]
  - Pain [Unknown]
  - Product dose omission [Unknown]
  - Paralysis [Unknown]
  - Nerve compression [Unknown]
  - Malaise [Unknown]
  - Memory impairment [Unknown]
